FAERS Safety Report 21610848 (Version 2)
Quarter: 2022Q4

REPORT INFORMATION
  Report Type: Report from Study
  Country: US (occurrence: US)
  Receive Date: 20221117
  Receipt Date: 20221123
  Transmission Date: 20230112
  Serious: No
  Sender: FDA-Public Use
  Company Number: US-ABBVIE-22K-163-4401788-00

PATIENT
  Sex: Female

DRUGS (8)
  1. HUMIRA [Suspect]
     Active Substance: ADALIMUMAB
     Indication: Rheumatoid arthritis
     Dosage: CITRATE FREE, FORM STRENGTH 40 MG
     Route: 058
     Dates: start: 20211219
  2. HUMIRA [Suspect]
     Active Substance: ADALIMUMAB
     Dosage: CITRATE FREE, FORM STRENGTH 40 MG
     Route: 058
     Dates: start: 20211219
  3. HUMIRA [Suspect]
     Active Substance: ADALIMUMAB
     Dosage: CITRATE FREE, FORM STRENGTH 40 MG
     Route: 058
     Dates: start: 20211214
  4. MODERNA COVID-19 VACCINE [Suspect]
     Active Substance: ELASOMERAN
     Indication: COVID-19 immunisation
     Dosage: FIRST DOSE, ONE IN ONCE
     Route: 030
     Dates: start: 20201230, end: 20201230
  5. MODERNA COVID-19 VACCINE [Suspect]
     Active Substance: ELASOMERAN
     Indication: COVID-19 immunisation
     Dosage: SECOND DOSE, ONE IN ONCE
     Route: 030
     Dates: start: 20210127, end: 20210127
  6. MODERNA COVID-19 VACCINE [Suspect]
     Active Substance: ELASOMERAN
     Indication: COVID-19 immunisation
     Dosage: BOOSTER DOSE, ONE IN ONCE
     Route: 030
     Dates: start: 20211110, end: 20211110
  7. LEVOTHYROXINE [Concomitant]
     Active Substance: LEVOTHYROXINE
     Indication: Hypothyroidism
  8. DICLOFENAC [Concomitant]
     Active Substance: DICLOFENAC
     Indication: Osteoarthritis

REACTIONS (15)
  - Pain [Unknown]
  - Musculoskeletal disorder [Not Recovered/Not Resolved]
  - Osteoarthritis [Not Recovered/Not Resolved]
  - Drug ineffective [Not Recovered/Not Resolved]
  - Grip strength decreased [Not Recovered/Not Resolved]
  - Malaise [Unknown]
  - Illness [Recovered/Resolved]
  - Illness [Recovered/Resolved]
  - Rheumatoid arthritis [Not Recovered/Not Resolved]
  - Pain in extremity [Unknown]
  - Rash macular [Not Recovered/Not Resolved]
  - Injection site pruritus [Recovered/Resolved]
  - Mobility decreased [Recovered/Resolved]
  - Injection site erythema [Recovered/Resolved]
  - Autoimmune thyroiditis [Not Recovered/Not Resolved]

NARRATIVE: CASE EVENT DATE: 20210101
